FAERS Safety Report 13439955 (Version 1)
Quarter: 2017Q2

REPORT INFORMATION
  Report Type: Spontaneous
  Country: US (occurrence: US)
  Receive Date: 20170413
  Receipt Date: 20170413
  Transmission Date: 20170830
  Serious: Yes (Other)
  Sender: FDA-Public Use
  Company Number: US-AMGEN-USASP2017053290

PATIENT
  Age: 94 Year
  Sex: Female

DRUGS (1)
  1. PROLIA [Suspect]
     Active Substance: DENOSUMAB
     Indication: OSTEOPOROSIS POSTMENOPAUSAL
     Dosage: UNK
     Route: 065
     Dates: start: 2011

REACTIONS (16)
  - Renal impairment [Unknown]
  - Blood urine present [Unknown]
  - Confusional state [Unknown]
  - Constipation [Unknown]
  - Anxiety [Unknown]
  - Hallucination [Unknown]
  - Hypothyroidism [Unknown]
  - Sleep disorder [Unknown]
  - Urinary tract infection [Unknown]
  - Hyperparathyroidism secondary [Unknown]
  - Weight decreased [Unknown]
  - Abdominal pain upper [Unknown]
  - Pruritus [Unknown]
  - Diarrhoea [Unknown]
  - Gastrointestinal disorder [Unknown]
  - Blood calcium decreased [Unknown]

NARRATIVE: CASE EVENT DATE: 2011
